FAERS Safety Report 8800943 (Version 2)
Quarter: 2012Q4

REPORT INFORMATION
  Report Type: 
  Country: FR (occurrence: FR)
  Receive Date: 20120921
  Receipt Date: 20121001
  Transmission Date: 20130627
  Serious: Yes (Other)
  Sender: FDA-Public Use
  Company Number: FR-PFIZER INC-2012230733

PATIENT
  Age: 30 Year
  Sex: Female
  Weight: 45 kg

DRUGS (1)
  1. CHAMPIX [Suspect]
     Dosage: UNK

REACTIONS (7)
  - Blood pressure decreased [Unknown]
  - Abasia [Unknown]
  - Abdominal pain upper [Unknown]
  - Feeling hot [Unknown]
  - Hyperhidrosis [Unknown]
  - Dizziness [Unknown]
  - Vomiting [Unknown]
